FAERS Safety Report 6836362-5 (Version None)
Quarter: 2010Q3

REPORT INFORMATION
  Report Type: 
  Country: None (occurrence: None)
  Receive Date: 20100713
  Receipt Date: 20100708
  Transmission Date: 20110219
  Serious: Yes (Death, Hospitalization)
  Sender: FDA-Public Use
  Company Number: US-CELGENEUS-163-21880-10041526

PATIENT
  Sex: Male

DRUGS (7)
  1. REVLIMID [Suspect]
     Indication: MULTIPLE MYELOMA
     Route: 048
     Dates: start: 20100325, end: 20100404
  2. REVLIMID [Suspect]
     Route: 048
     Dates: start: 20100429
  3. LIPITOR [Concomitant]
     Indication: PRODUCT USED FOR UNKNOWN INDICATION
     Route: 065
  4. VICODIN [Concomitant]
     Indication: BONE PAIN
     Route: 065
     Dates: start: 20100315
  5. AREDIA [Concomitant]
     Route: 065
     Dates: start: 20100310
  6. AREDIA [Concomitant]
  7. DECADRON [Concomitant]
     Route: 065
     Dates: start: 20100325

REACTIONS (4)
  - COLD SWEAT [None]
  - DEATH [None]
  - HYPOTENSION [None]
  - LACTIC ACIDOSIS [None]
